FAERS Safety Report 9845801 (Version 1)
Quarter: 2014Q1

REPORT INFORMATION
  Report Type: Spontaneous
  Country: US (occurrence: US)
  Receive Date: 20140127
  Receipt Date: 20140127
  Transmission Date: 20141002
  Serious: No
  Sender: FDA-Public Use
  Company Number: US-PFIZER INC-2014020036

PATIENT
  Age: 57 Year
  Sex: Male

DRUGS (1)
  1. XALKORI [Suspect]
     Indication: LUNG NEOPLASM MALIGNANT
     Dosage: UNK
     Dates: start: 20131114

REACTIONS (2)
  - Dizziness [Unknown]
  - Nausea [Unknown]
